FAERS Safety Report 14213813 (Version 2)
Quarter: 2017Q4

REPORT INFORMATION
  Report Type: Report from Study
  Country: US (occurrence: US)
  Receive Date: 20171122
  Receipt Date: 20171227
  Transmission Date: 20180321
  Serious: Yes (Other)
  Sender: FDA-Public Use
  Company Number: US-GILEAD-2017-0305745

PATIENT
  Age: 65 Year
  Sex: Female
  Weight: 63.39 kg

DRUGS (14)
  1. REMODULIN [Suspect]
     Active Substance: TREPROSTINIL
     Dosage: 50 UG/KG, UNK
     Route: 058
  2. SYNTHROID [Concomitant]
     Active Substance: LEVOTHYROXINE SODIUM
  3. REMODULIN [Suspect]
     Active Substance: TREPROSTINIL
     Dosage: 48 UG/KG, UNK
     Route: 058
  4. ADCIRCA [Concomitant]
     Active Substance: TADALAFIL
  5. ALPRAZOLAM. [Concomitant]
     Active Substance: ALPRAZOLAM
  6. REMODULIN [Suspect]
     Active Substance: TREPROSTINIL
     Indication: PULMONARY HYPERTENSION
     Dosage: 40 UG/KG, UNK
     Route: 058
     Dates: start: 20170915
  7. ELIQUIS [Concomitant]
     Active Substance: APIXABAN
  8. FAMOTIDINE. [Concomitant]
     Active Substance: FAMOTIDINE
  9. REMODULIN [Suspect]
     Active Substance: TREPROSTINIL
     Indication: PULMONARY ARTERIAL HYPERTENSION
     Dosage: 0.032 UG/KG, UNK
     Route: 058
     Dates: start: 20170629
  10. AMBRISENTAN [Suspect]
     Active Substance: AMBRISENTAN
     Dosage: 10 MG, QD
     Route: 065
  11. REMODULIN [Suspect]
     Active Substance: TREPROSTINIL
     Dosage: 47.5 UG/KG, UNK
     Route: 058
  12. SPIRONOLACTONE. [Concomitant]
     Active Substance: SPIRONOLACTONE
  13. AMBRISENTAN [Suspect]
     Active Substance: AMBRISENTAN
     Indication: PULMONARY ARTERIAL HYPERTENSION
     Dosage: 5 MG, QD
     Route: 065
     Dates: start: 20170626
  14. LASIX [Concomitant]
     Active Substance: FUROSEMIDE

REACTIONS (14)
  - Decreased appetite [Not Recovered/Not Resolved]
  - Paranasal sinus hypersecretion [Unknown]
  - Constipation [Not Recovered/Not Resolved]
  - Kidney infection [Not Recovered/Not Resolved]
  - Infusion site rash [Unknown]
  - Dizziness [Not Recovered/Not Resolved]
  - Headache [Unknown]
  - Diarrhoea [Not Recovered/Not Resolved]
  - Viral infection [Not Recovered/Not Resolved]
  - Sluggishness [Not Recovered/Not Resolved]
  - Nausea [Recovered/Resolved]
  - Hot flush [Recovered/Resolved]
  - Fatigue [Not Recovered/Not Resolved]
  - Vomiting [Not Recovered/Not Resolved]

NARRATIVE: CASE EVENT DATE: 2017
